FAERS Safety Report 4405516-X (Version None)
Quarter: 2004Q3

REPORT INFORMATION
  Report Type: 
  Country: None (occurrence: None)
  Receive Date: 20040723
  Receipt Date: 20030917
  Transmission Date: 20050211
  Serious: No
  Sender: FDA-Public Use
  Company Number: US-GLAXOSMITHKLINE-A0426178A

PATIENT
  Age: 71 Year
  Sex: Female
  Weight: 81 kg

DRUGS (6)
  1. AVANDIA [Suspect]
     Indication: DIABETES MELLITUS
     Route: 065
  2. LANTUS [Suspect]
     Indication: DIABETES MELLITUS
     Dosage: 15UNIT IN THE MORNING
     Route: 042
  3. GLUCOTROL [Concomitant]
     Indication: ILL-DEFINED DISORDER
     Route: 065
  4. GLUCOPHAGE [Concomitant]
     Indication: ILL-DEFINED DISORDER
     Route: 065
  5. DIOVAN [Concomitant]
     Indication: ILL-DEFINED DISORDER
     Route: 065
  6. INDERAL [Concomitant]
     Indication: ILL-DEFINED DISORDER
     Route: 065

REACTIONS (2)
  - FATIGUE [None]
  - OEDEMA PERIPHERAL [None]
